FAERS Safety Report 18837892 (Version 2)
Quarter: 2021Q1

REPORT INFORMATION
  Report Type: Spontaneous
  Country: CA (occurrence: BR)
  Receive Date: 20210203
  Receipt Date: 20210209
  Transmission Date: 20210419
  Serious: Yes (Other)
  Sender: FDA-Public Use
  Company Number: BR-CELGENEUS-BRA-20210107295

PATIENT
  Sex: Female

DRUGS (1)
  1. REVLIMID [Suspect]
     Active Substance: LENALIDOMIDE
     Indication: STEM CELL THERAPY
     Dosage: 10 MILLIGRAM
     Route: 048
     Dates: start: 20201125

REACTIONS (5)
  - Erythema [Unknown]
  - Peripheral swelling [Unknown]
  - Pruritus [Unknown]
  - Plasma cell myeloma [Unknown]
  - Eosinophilic cellulitis [Unknown]
